FAERS Safety Report 5352156-4 (Version None)
Quarter: 2007Q2

REPORT INFORMATION
  Report Type: 
  Country: None (occurrence: None)
  Receive Date: 20070611
  Receipt Date: 20070604
  Transmission Date: 20071010
  Serious: No
  Sender: FDA-Public Use
  Company Number: ES-NOVOPROD-264097

PATIENT
  Age: 75 Year

DRUGS (1)
  1. LEVEMIR [Suspect]
     Indication: DRUG USE FOR UNKNOWN INDICATION

REACTIONS (2)
  - HOT FLUSH [None]
  - OEDEMA PERIPHERAL [None]
